FAERS Safety Report 21579993 (Version 1)
Quarter: 2022Q4

REPORT INFORMATION
  Report Type: Spontaneous
  Country: GB (occurrence: GB)
  Receive Date: 20221110
  Receipt Date: 20221110
  Transmission Date: 20230112
  Serious: Yes (Other)
  Sender: FDA-Public Use
  Company Number: None

PATIENT
  Age: 73 Year
  Sex: Male

DRUGS (5)
  1. DOXYCYCLINE [Suspect]
     Active Substance: DOXYCYCLINE
     Indication: Respiratory tract infection
     Dosage: 1 MG
     Route: 048
     Dates: start: 20221107, end: 20221108
  2. PREDNISOLONE [Suspect]
     Active Substance: PREDNISOLONE
     Indication: Respiratory tract infection
     Dosage: 1 MG
     Route: 048
     Dates: start: 20221107, end: 20221108
  3. METFORMIN [Concomitant]
     Active Substance: METFORMIN HYDROCHLORIDE
     Dosage: UNK
  4. RAMIPRIL [Concomitant]
     Active Substance: RAMIPRIL
     Dosage: UNK
  5. INSULIN NOS [Concomitant]
     Active Substance: INSULIN NOS
     Dosage: UNK

REACTIONS (8)
  - Neuropathy peripheral [Not Recovered/Not Resolved]
  - Abdominal distension [Not Recovered/Not Resolved]
  - Abdominal pain [Not Recovered/Not Resolved]
  - Renal pain [Not Recovered/Not Resolved]
  - Headache [Not Recovered/Not Resolved]
  - Hypoaesthesia [Unknown]
  - Back pain [Not Recovered/Not Resolved]
  - Gastric dilatation [Not Recovered/Not Resolved]

NARRATIVE: CASE EVENT DATE: 20221108
